FAERS Safety Report 18757568 (Version 2)
Quarter: 2022Q2

REPORT INFORMATION
  Report Type: Spontaneous
  Country: US (occurrence: US)
  Receive Date: 20210119
  Receipt Date: 20220401
  Transmission Date: 20220720
  Serious: Yes (Other)
  Sender: FDA-Public Use
  Company Number: US-GLAXOSMITHKLINE-US2021GSK011925

PATIENT
  Sex: Male

DRUGS (7)
  1. RANITIDINE [Suspect]
     Active Substance: RANITIDINE
     Indication: Food allergy
     Dosage: UNK, QD
     Route: 065
     Dates: start: 1997, end: 2020
  2. RANITIDINE [Suspect]
     Active Substance: RANITIDINE
     Dosage: UNK, QD
     Route: 065
     Dates: start: 199701, end: 202001
  3. RANITIDINE [Suspect]
     Active Substance: RANITIDINE
     Indication: Food allergy
     Dosage: UNK, QD
     Route: 065
     Dates: start: 1997, end: 2020
  4. RANITIDINE [Suspect]
     Active Substance: RANITIDINE
     Dosage: UNK, QD
     Route: 065
     Dates: start: 199701, end: 202001
  5. ZANTAC [Suspect]
     Active Substance: RANITIDINE HYDROCHLORIDE
     Indication: Food allergy
     Dosage: UNK UNK, QD
     Route: 065
     Dates: start: 199501, end: 202001
  6. ZANTAC [Suspect]
     Active Substance: RANITIDINE HYDROCHLORIDE
     Dosage: UNK
  7. ZANTAC [Suspect]
     Active Substance: RANITIDINE HYDROCHLORIDE
     Indication: Food allergy
     Dosage: UNK UNK, QD
     Route: 065
     Dates: start: 199501, end: 202001

REACTIONS (1)
  - Prostate cancer [Unknown]
